FAERS Safety Report 14943239 (Version 1)
Quarter: 2018Q2

REPORT INFORMATION
  Report Type: Report from Study
  Country: None (occurrence: US)
  Receive Date: 20180528
  Receipt Date: 20180528
  Transmission Date: 20180711
  Serious: Yes (Hospitalization, Other)
  Sender: FDA-Public Use
  Company Number: US-ABBVIE-18K-163-2254097-00

PATIENT
  Sex: Female
  Weight: 64.01 kg

DRUGS (12)
  1. HUMIRA [Suspect]
     Active Substance: ADALIMUMAB
     Indication: PSORIATIC ARTHROPATHY
     Route: 058
     Dates: start: 201603, end: 201712
  2. HUMIRA [Suspect]
     Active Substance: ADALIMUMAB
     Route: 058
     Dates: start: 201804
  3. CHLORHEXIDINE [Suspect]
     Active Substance: CHLORHEXIDINE
     Indication: SURGICAL PRECONDITIONING
     Route: 065
     Dates: start: 20171226, end: 20171226
  4. SINGULAIR [Concomitant]
     Active Substance: MONTELUKAST SODIUM
     Indication: ASTHMA
  5. FLEXERIL [Concomitant]
     Active Substance: CYCLOBENZAPRINE HYDROCHLORIDE
     Indication: NEURALGIA
  6. FLONASE [Concomitant]
     Active Substance: FLUTICASONE PROPIONATE
     Indication: HYPERSENSITIVITY
  7. ALBUTEROL. [Concomitant]
     Active Substance: ALBUTEROL
     Indication: ASTHMA
  8. OTEZLA [Concomitant]
     Active Substance: APREMILAST
     Indication: PSORIATIC ARTHROPATHY
  9. CLONAZEPAM. [Concomitant]
     Active Substance: CLONAZEPAM
     Indication: SPASMODIC DYSPHONIA
  10. ESTRADIOL. [Concomitant]
     Active Substance: ESTRADIOL
     Indication: HORMONE REPLACEMENT THERAPY
  11. GABAPENTIN. [Concomitant]
     Active Substance: GABAPENTIN
     Indication: NEURALGIA
  12. DULERA [Concomitant]
     Active Substance: FORMOTEROL FUMARATE DIHYDRATE\MOMETASONE FUROATE
     Indication: ASTHMA

REACTIONS (26)
  - Oesophageal oedema [Recovered/Resolved]
  - Rash [Recovered/Resolved]
  - Tissue injury [Recovered/Resolved]
  - Aortic disorder [Recovered/Resolved]
  - Adhesion [Recovered/Resolved]
  - Gallbladder enlargement [Recovering/Resolving]
  - Blood pressure increased [Recovered/Resolved]
  - Loss of consciousness [Recovered/Resolved]
  - White blood cell count increased [Recovered/Resolved]
  - Urinary retention [Recovered/Resolved]
  - Abdominal distension [Recovered/Resolved]
  - Cellulitis [Recovered/Resolved]
  - Urinary tract infection [Recovered/Resolved]
  - Loss of consciousness [Recovered/Resolved]
  - Memory impairment [Recovered/Resolved]
  - Urinary retention [Recovered/Resolved]
  - Pancreatic disorder [Recovering/Resolving]
  - Dysplasia [Unknown]
  - Vulvovaginal swelling [Recovered/Resolved]
  - Gastrointestinal wall thickening [Recovering/Resolving]
  - Pain [Recovered/Resolved]
  - Confusional state [Recovered/Resolved]
  - Mass [Recovered/Resolved]
  - Hypoaesthesia [Recovered/Resolved]
  - Skin exfoliation [Recovered/Resolved]
  - Nail disorder [Not Recovered/Not Resolved]

NARRATIVE: CASE EVENT DATE: 201711
